FAERS Safety Report 7225039-2 (Version None)
Quarter: 2010Q4

REPORT INFORMATION
  Report Type: 
  Country: None (occurrence: None)
  Receive Date: 20101223
  Receipt Date: 20101215
  Transmission Date: 20110411
  Serious: Yes (Hospitalization, Disabling)
  Sender: FDA-Public Use
  Company Number: GB-IGSA-IG735

PATIENT
  Age: 60 Year
  Sex: Female

DRUGS (4)
  1. FLEBOGAMMA? 5% DIF [Suspect]
     Indication: MYELITIS TRANSVERSE
     Dosage: I.V.
     Route: 042
     Dates: start: 20101119
  2. GABAPENTIN [Concomitant]
  3. MYCOPHENOLATE SODIUM [Concomitant]
  4. PERINDOPRIL [Concomitant]

REACTIONS (5)
  - CONDITION AGGRAVATED [None]
  - MYELITIS TRANSVERSE [None]
  - PARAPARESIS [None]
  - SENSORY LOSS [None]
  - SPINAL CORD DISORDER [None]
